FAERS Safety Report 24574781 (Version 2)
Quarter: 2025Q3

REPORT INFORMATION
  Report Type: Other
  Country: EU (occurrence: EU)
  Receive Date: 20241104
  Receipt Date: 20250808
  Transmission Date: 20251021
  Serious: Yes (Death, Hospitalization, Other)
  Sender: BIOCON
  Company Number: EU-EMA-DD-20241024-7482645-085337

PATIENT

DRUGS (45)
  1. TRASTUZUMAB [Suspect]
     Active Substance: TRASTUZUMAB
     Indication: Breast cancer
     Route: 042
     Dates: start: 202111
  2. TRASTUZUMAB [Suspect]
     Active Substance: TRASTUZUMAB
     Indication: Chemotherapy
  3. TRASTUZUMAB [Suspect]
     Active Substance: TRASTUZUMAB
     Indication: Hormone therapy
  4. TRASTUZUMAB [Suspect]
     Active Substance: TRASTUZUMAB
     Indication: Neoplasm malignant
  5. TRASTUZUMAB [Suspect]
     Active Substance: TRASTUZUMAB
     Indication: Prophylaxis
  6. CAPECITABINE [Suspect]
     Active Substance: CAPECITABINE
     Indication: Breast cancer
     Route: 048
     Dates: start: 202111
  7. CAPECITABINE [Suspect]
     Active Substance: CAPECITABINE
     Indication: Chemotherapy
  8. CAPECITABINE [Suspect]
     Active Substance: CAPECITABINE
     Indication: Hormone therapy
  9. CAPECITABINE [Suspect]
     Active Substance: CAPECITABINE
     Indication: Neoplasm malignant
  10. CAPECITABINE [Suspect]
     Active Substance: CAPECITABINE
     Indication: Prophylaxis
  11. PACLITAXEL [Suspect]
     Active Substance: PACLITAXEL
     Indication: Breast cancer
     Route: 042
     Dates: start: 202012
  12. PACLITAXEL [Suspect]
     Active Substance: PACLITAXEL
     Indication: Chemotherapy
  13. PACLITAXEL [Suspect]
     Active Substance: PACLITAXEL
     Indication: Hormone therapy
  14. PACLITAXEL [Suspect]
     Active Substance: PACLITAXEL
     Indication: Neoplasm malignant
  15. PACLITAXEL [Suspect]
     Active Substance: PACLITAXEL
     Indication: Prophylaxis
  16. PACLITAXEL [Suspect]
     Active Substance: PACLITAXEL
     Indication: Neoplasm malignant
  17. PERTUZUMAB [Suspect]
     Active Substance: PERTUZUMAB
     Indication: Breast cancer
     Route: 042
     Dates: start: 202012
  18. PERTUZUMAB [Suspect]
     Active Substance: PERTUZUMAB
     Indication: Chemotherapy
  19. PERTUZUMAB [Suspect]
     Active Substance: PERTUZUMAB
     Indication: Hormone therapy
  20. PERTUZUMAB [Suspect]
     Active Substance: PERTUZUMAB
     Indication: Neoplasm malignant
  21. PERTUZUMAB [Suspect]
     Active Substance: PERTUZUMAB
     Indication: Prophylaxis
  22. PERTUZUMAB [Suspect]
     Active Substance: PERTUZUMAB
     Indication: Neoplasm malignant
  23. TAXOTERE [Suspect]
     Active Substance: DOCETAXEL
     Indication: Breast cancer
     Route: 065
  24. TAXOTERE [Suspect]
     Active Substance: DOCETAXEL
     Indication: Chemotherapy
     Route: 042
     Dates: start: 202012
  25. TAXOTERE [Suspect]
     Active Substance: DOCETAXEL
     Indication: Hormone therapy
  26. TAXOTERE [Suspect]
     Active Substance: DOCETAXEL
     Indication: Neoplasm malignant
  27. TAXOTERE [Suspect]
     Active Substance: DOCETAXEL
     Indication: Prophylaxis
  28. TUCATINIB [Suspect]
     Active Substance: TUCATINIB
     Indication: Breast cancer
     Route: 048
     Dates: start: 202111
  29. TUCATINIB [Suspect]
     Active Substance: TUCATINIB
     Indication: Chemotherapy
  30. TUCATINIB [Suspect]
     Active Substance: TUCATINIB
     Indication: Hormone therapy
  31. TUCATINIB [Suspect]
     Active Substance: TUCATINIB
     Indication: Neoplasm malignant
  32. TUCATINIB [Suspect]
     Active Substance: TUCATINIB
     Indication: Prophylaxis
  33. DOCETAXEL [Suspect]
     Active Substance: DOCETAXEL
     Indication: Breast cancer
     Route: 065
  34. DOCETAXEL [Suspect]
     Active Substance: DOCETAXEL
     Indication: Chemotherapy
  35. DOCETAXEL [Suspect]
     Active Substance: DOCETAXEL
     Indication: Hormone therapy
  36. DOCETAXEL [Suspect]
     Active Substance: DOCETAXEL
     Indication: Neoplasm malignant
  37. DOCETAXEL [Suspect]
     Active Substance: DOCETAXEL
     Indication: Prophylaxis
  38. LETROZOLE [Suspect]
     Active Substance: LETROZOLE
     Indication: Breast cancer
     Route: 065
  39. LETROZOLE [Suspect]
     Active Substance: LETROZOLE
     Indication: Chemotherapy
  40. LETROZOLE [Suspect]
     Active Substance: LETROZOLE
     Indication: Hormone therapy
  41. LETROZOLE [Suspect]
     Active Substance: LETROZOLE
     Indication: Neoplasm malignant
  42. LETROZOLE [Suspect]
     Active Substance: LETROZOLE
     Indication: Prophylaxis
  43. TRASTUZUMAB DERUXTECAN [Suspect]
     Active Substance: TRASTUZUMAB DERUXTECAN
     Indication: Prophylaxis
     Route: 042
     Dates: start: 202012
  44. TRASTUZUMAB DERUXTECAN [Suspect]
     Active Substance: TRASTUZUMAB DERUXTECAN
     Indication: HER2 positive breast cancer
     Route: 042
     Dates: start: 202111
  45. CYCLOPHOSPHAMIDE\EPIRUBICIN HYDROCHLORIDE\FLUOROURACIL [Suspect]
     Active Substance: CYCLOPHOSPHAMIDE\EPIRUBICIN HYDROCHLORIDE\FLUOROURACIL
     Indication: Chemotherapy
     Route: 042

REACTIONS (22)
  - Metastases to meninges [Fatal]
  - Glossopharyngeal nerve paralysis [Fatal]
  - Hyperproteinaemia [Fatal]
  - Diplopia [Fatal]
  - Epilepsy [Fatal]
  - Neurological decompensation [Fatal]
  - Dysarthria [Fatal]
  - Paraesthesia [Fatal]
  - Hypoglycaemia [Fatal]
  - Cerebral haematoma [Fatal]
  - Altered state of consciousness [Fatal]
  - Metastases to adrenals [Fatal]
  - Cerebral haematoma [Fatal]
  - Metastases to adrenals [Fatal]
  - Metastases to meninges [Fatal]
  - Fall [Fatal]
  - Disease progression [Fatal]
  - Metastases to liver [Fatal]
  - Metastases to bone [Fatal]
  - Metastases to lymph nodes [Fatal]
  - Metastases to lung [Fatal]
  - Drug ineffective [Fatal]

NARRATIVE: CASE EVENT DATE: 20201001
